FAERS Safety Report 18647120 (Version 1)
Quarter: 2020Q4

REPORT INFORMATION
  Report Type: Spontaneous
  Country: FR (occurrence: FR)
  Receive Date: 20201222
  Receipt Date: 20201222
  Transmission Date: 20210114
  Serious: Yes (Hospitalization)
  Sender: FDA-Public Use
  Company Number: FR-JNJFOC-20201225632

PATIENT
  Age: 35 Year
  Sex: Male

DRUGS (3)
  1. TREVICTA [Suspect]
     Active Substance: PALIPERIDONE PALMITATE
     Route: 030
     Dates: start: 20201214
  2. TREVICTA [Suspect]
     Active Substance: PALIPERIDONE PALMITATE
  3. TREVICTA [Suspect]
     Active Substance: PALIPERIDONE PALMITATE
     Indication: PRODUCT USED FOR UNKNOWN INDICATION
     Route: 030
     Dates: start: 20201119

REACTIONS (3)
  - Off label use [Unknown]
  - Hospitalisation [Unknown]
  - Inappropriate schedule of product administration [Unknown]
